FAERS Safety Report 19068750 (Version 1)
Quarter: 2021Q1

REPORT INFORMATION
  Report Type: Spontaneous
  Country: US (occurrence: US)
  Receive Date: 20210328
  Receipt Date: 20210328
  Transmission Date: 20210420
  Serious: Yes (Life-Threatening, Disabling)
  Sender: FDA-Public Use
  Company Number: None

PATIENT
  Age: 20 Year
  Sex: Female
  Weight: 56.25 kg

DRUGS (5)
  1. HOMOLOG FLEXPEN [Concomitant]
  2. CLARAVIS [Suspect]
     Active Substance: ISOTRETINOIN
     Indication: ACNE
     Dosage: ?          QUANTITY:4 CAPSULE(S);?
     Route: 048
  3. EFFEXOR [Concomitant]
     Active Substance: VENLAFAXINE HYDROCHLORIDE
  4. TRESIBA [Concomitant]
     Active Substance: INSULIN DEGLUDEC
  5. FREESYTLE LIBRE 2 [Concomitant]

REACTIONS (5)
  - Blood cholesterol increased [None]
  - Thirst [None]
  - Glycosylated haemoglobin increased [None]
  - Type 2 diabetes mellitus [None]
  - Weight increased [None]

NARRATIVE: CASE EVENT DATE: 20210216
